FAERS Safety Report 8580561-1 (Version None)
Quarter: 2012Q3

REPORT INFORMATION
  Report Type: 
  Country: None (occurrence: None)
  Receive Date: 20120808
  Receipt Date: 20120802
  Transmission Date: 20120928
  Serious: Yes (Hospitalization)
  Sender: FDA-Public Use
  Company Number: CHPA2012US016019

PATIENT
  Age: 78 Year
  Sex: Male

DRUGS (2)
  1. DABIGATRAN [Suspect]
     Dosage: UNK, UNK
     Route: 065
  2. VOLTAREN [Suspect]
     Dosage: UNK, UNK
     Route: 061

REACTIONS (2)
  - LOCALISED INFECTION [None]
  - WOUND [None]
